FAERS Safety Report 6794159-9 (Version None)
Quarter: 2010Q2

REPORT INFORMATION
  Report Type: 
  Country: None (occurrence: None)
  Receive Date: 20100624
  Receipt Date: 20080912
  Transmission Date: 20101027
  Serious: Yes (Other)
  Sender: FDA-Public Use
  Company Number: US-PFIZER INC-ENC200800177

PATIENT

DRUGS (2)
  1. ARGATROBAN [Suspect]
     Route: 042
  2. WARFARIN SODIUM [Concomitant]

REACTIONS (1)
  - COAGULATION TIME PROLONGED [None]
